FAERS Safety Report 8263893-6 (Version None)
Quarter: 2012Q2

REPORT INFORMATION
  Report Type: 
  Country: None (occurrence: None)
  Receive Date: 20120405
  Receipt Date: 20081017
  Transmission Date: 20120825
  Serious: Yes (Hospitalization)
  Sender: FDA-Public Use
  Company Number: PHFR2008GB004096

PATIENT

DRUGS (2)
  1. EXJADE [Suspect]
     Dosage: 1750 MG, QD
     Dates: start: 20081011
  2. EXJADE [Suspect]
     Dosage: UNK UKN, UNK

REACTIONS (1)
  - NASOPHARYNGITIS [None]
